FAERS Safety Report 7633561-X (Version None)
Quarter: 2011Q3

REPORT INFORMATION
  Report Type: 
  Country: None (occurrence: None)
  Receive Date: 20110725
  Receipt Date: 20110705
  Transmission Date: 20111222
  Serious: Yes (Hospitalization)
  Sender: FDA-Public Use
  Company Number: US-GLAXOSMITHKLINE-A0834248A

PATIENT
  Age: 52 Year
  Sex: Male
  Weight: 148.2 kg

DRUGS (7)
  1. GLUCOTROL [Concomitant]
  2. HYZAAR [Concomitant]
  3. METFORMIN HCL [Concomitant]
  4. NEXIUM [Concomitant]
  5. AVANDIA [Suspect]
     Indication: DIABETES MELLITUS
     Dosage: 4MG TWICE PER DAY
     Route: 048
     Dates: start: 20030514, end: 20070605
  6. ALLOPURINOL [Concomitant]
  7. ATENOLOL [Concomitant]

REACTIONS (2)
  - CORONARY ARTERY OCCLUSION [None]
  - MYOCARDIAL INFARCTION [None]
